FAERS Safety Report 15450662 (Version 2)
Quarter: 2018Q4

REPORT INFORMATION
  Report Type: Spontaneous
  Country: US (occurrence: US)
  Receive Date: 20181001
  Receipt Date: 20181116
  Transmission Date: 20190204
  Serious: No
  Sender: FDA-Public Use
  Company Number: US-SA-2018SA270493

PATIENT
  Age: 54 Year
  Sex: Female

DRUGS (1)
  1. CEREZYME [Suspect]
     Active Substance: IMIGLUCERASE
     Indication: GAUCHER^S DISEASE
     Dosage: 5600 U OR 15 VIALS, QOW
     Route: 041

REACTIONS (2)
  - Product dose omission [Unknown]
  - Physical product label issue [Unknown]

NARRATIVE: CASE EVENT DATE: 20180925
